FAERS Safety Report 8131356 (Version 3)
Quarter: 2013Q1

REPORT INFORMATION
  Report Type: Spontaneous
  Country: US (occurrence: US)
  Receive Date: 20110912
  Receipt Date: 20130227
  Transmission Date: 20140127
  Serious: Yes (Hospitalization)
  Sender: FDA-Public Use
  Company Number: US-GLAXOSMITHKLINE-A0897093A

PATIENT
  Age: 60 Year
  Sex: Female

DRUGS (1)
  1. AVANDIA [Suspect]
     Indication: TYPE 2 DIABETES MELLITUS
     Dosage: 4MG PER DAY
     Route: 048
     Dates: start: 20060407, end: 20100501

REACTIONS (4)
  - Acute myocardial infarction [Not Recovered/Not Resolved]
  - Arteriosclerosis [Unknown]
  - Pain in extremity [Unknown]
  - Musculoskeletal pain [Unknown]
